FAERS Safety Report 21209652 (Version 1)
Quarter: 2022Q3

REPORT INFORMATION
  Report Type: Spontaneous
  Country: FR (occurrence: FR)
  Receive Date: 20220813
  Receipt Date: 20220813
  Transmission Date: 20221027
  Serious: Yes (Other)
  Sender: FDA-Public Use
  Company Number: None

PATIENT
  Age: 60 Year
  Sex: Female
  Weight: 47 kg

DRUGS (1)
  1. CIMZIA [Suspect]
     Active Substance: CERTOLIZUMAB PEGOL
     Indication: Spondylitis
     Dosage: 200 MILLIGRAM, 1 TOTAL
     Route: 058
     Dates: start: 20220718

REACTIONS (1)
  - Haematoma [Recovering/Resolving]

NARRATIVE: CASE EVENT DATE: 20220719
